FAERS Safety Report 8773636 (Version 1)
Quarter: 2012Q4

REPORT INFORMATION
  Report Type: 
  Country: US (occurrence: US)
  Receive Date: 20120907
  Receipt Date: 20120907
  Transmission Date: 20130627
  Serious: Yes (Death)
  Sender: FDA-Public Use
  Company Number: PHHY2012US077528

PATIENT
  Age: 18 Year

DRUGS (2)
  1. SANDIMMUNE NEORAL [Suspect]
     Indication: CRANIOCEREBRAL INJURY
     Dosage: 5 mg/kg, UNK
  2. DEXTROSE [Concomitant]
     Dosage: 250 ml, UNK

REACTIONS (1)
  - Cardiac arrest [Fatal]
